FAERS Safety Report 6202057-4 (Version None)
Quarter: 2009Q2

REPORT INFORMATION
  Report Type: 
  Country: None (occurrence: None)
  Receive Date: 20090526
  Receipt Date: 20090520
  Transmission Date: 20091009
  Serious: Yes (Other)
  Sender: FDA-Public Use
  Company Number: B0574934A

PATIENT
  Sex: Female

DRUGS (6)
  1. ZINNAT INJECTABLE [Suspect]
     Indication: URINARY TRACT INFECTION
     Route: 042
     Dates: start: 20071028
  2. PROGRAF [Suspect]
     Dosage: 6MG PER DAY
     Route: 048
     Dates: start: 20071031, end: 20071101
  3. ZENAPAX [Suspect]
     Dosage: 50MG PER DAY
     Route: 042
     Dates: start: 20071028, end: 20071029
  4. CELLCEPT [Suspect]
     Dosage: 2G PER DAY
     Route: 048
     Dates: start: 20071028
  5. SOLU-MEDROL [Suspect]
     Dosage: 60MG PER DAY
     Route: 042
     Dates: start: 20071028
  6. NALBUPHINE [Suspect]
     Indication: PAIN
     Route: 042
     Dates: start: 20071028

REACTIONS (4)
  - HALLUCINATION [None]
  - HEADACHE [None]
  - HYPERTENSION [None]
  - VISION BLURRED [None]
